FAERS Safety Report 8789277 (Version 1)
Quarter: 2012Q4

REPORT INFORMATION
  Report Type: Spontaneous
  Country: US (occurrence: None)
  Receive Date: 20120910
  Receipt Date: 20120910
  Transmission Date: 20130627
  Serious: Yes (Disabling)
  Sender: FDA-Public Use
  Company Number: None

PATIENT
  Age: 40 Year
  Sex: Female
  Weight: 54.43 kg

DRUGS (2)
  1. AVELOX [Suspect]
     Indication: ROOT CANAL PROCEDURE
     Route: 048
     Dates: start: 20120611, end: 20120620
  2. AVELOX [Suspect]
     Indication: INFECTION
     Route: 048
     Dates: start: 20120611, end: 20120620

REACTIONS (5)
  - Middle insomnia [None]
  - Tendon pain [None]
  - Pain in extremity [None]
  - Pain in extremity [None]
  - Muscular weakness [None]
